FAERS Safety Report 6931067-4 (Version None)
Quarter: 2010Q3

REPORT INFORMATION
  Report Type: 
  Country: None (occurrence: None)
  Receive Date: 20100817
  Receipt Date: 20100817
  Transmission Date: 20110219
  Serious: Yes (Other)
  Sender: FDA-Public Use
  Company Number: None

PATIENT
  Age: 64 Year
  Sex: Female
  Weight: 110.9 kg

DRUGS (1)
  1. SIMVASTATIN [Suspect]
     Indication: BLOOD CHOLESTEROL INCREASED
     Dosage: 40MG TAB TEVA ONE DAILY P.M.
     Dates: start: 20091101, end: 20100804

REACTIONS (14)
  - CHEST PAIN [None]
  - CONFUSIONAL STATE [None]
  - DIZZINESS [None]
  - DYSPNOEA [None]
  - DYSURIA [None]
  - EYE PRURITUS [None]
  - EYE SWELLING [None]
  - LIP SWELLING [None]
  - MULTIPLE ALLERGIES [None]
  - MUSCLE SPASMS [None]
  - OEDEMA MOUTH [None]
  - PRURITUS [None]
  - SWELLING FACE [None]
  - SWOLLEN TONGUE [None]
